FAERS Safety Report 11082357 (Version 2)
Quarter: 2015Q3

REPORT INFORMATION
  Report Type: Spontaneous
  Country: JP (occurrence: JP)
  Receive Date: 20150501
  Receipt Date: 20150713
  Transmission Date: 20151125
  Serious: Yes (Other)
  Sender: FDA-Public Use
  Company Number: PHJP2015JP006926

PATIENT
  Age: 39 Year
  Sex: Male
  Weight: 68 kg

DRUGS (1)
  1. RIAMET [Suspect]
     Active Substance: ARTEMETHER\LUMEFANTRINE
     Indication: PLASMODIUM FALCIPARUM INFECTION
     Dosage: 1 DF (20 MG OF ARTEMETHER AND 120 MG OF LUMEFANTRINE)
     Route: 065

REACTIONS (1)
  - Haemolysis [Recovering/Resolving]
